FAERS Safety Report 16356569 (Version 1)
Quarter: 2019Q2

REPORT INFORMATION
  Report Type: Spontaneous
  Country: US (occurrence: US)
  Receive Date: 20190527
  Receipt Date: 20190527
  Transmission Date: 20190711
  Serious: Yes (Hospitalization)
  Sender: FDA-Public Use
  Company Number: US-SA-2019SA141259

PATIENT
  Sex: Female

DRUGS (1)
  1. TOUJEO [Suspect]
     Active Substance: INSULIN GLARGINE
     Route: 065

REACTIONS (6)
  - Fatigue [Unknown]
  - Cerebrovascular accident [Unknown]
  - Hypotension [Unknown]
  - Muscular weakness [Unknown]
  - Limb immobilisation [Unknown]
  - Dysphagia [Unknown]

NARRATIVE: CASE EVENT DATE: 20180911
